FAERS Safety Report 24364248 (Version 2)
Quarter: 2024Q4

REPORT INFORMATION
  Report Type: Report from Study
  Country: US (occurrence: US)
  Receive Date: 20240925
  Receipt Date: 20241224
  Transmission Date: 20250115
  Serious: Yes (Hospitalization)
  Sender: ABBVIE
  Company Number: US-ABBVIE-5773771

PATIENT
  Age: 51 Year
  Sex: Female

DRUGS (3)
  1. SKYRIZI [Suspect]
     Active Substance: RISANKIZUMAB-RZAA
     Indication: Crohn^s disease
     Dosage: LAST ADMIN DATE: 2024
     Route: 058
     Dates: start: 202401
  2. SKYRIZI [Suspect]
     Active Substance: RISANKIZUMAB-RZAA
     Dosage: LAST ADMIN DATE: 2024
     Route: 058
     Dates: start: 20240321
  3. SKYRIZI [Suspect]
     Active Substance: RISANKIZUMAB-RZAA
     Route: 058
     Dates: start: 20240424

REACTIONS (7)
  - Vomiting [Recovering/Resolving]
  - Crohn^s disease [Recovered/Resolved]
  - Rhinorrhoea [Recovering/Resolving]
  - Cough [Not Recovered/Not Resolved]
  - Sinusitis [Unknown]
  - Upper-airway cough syndrome [Not Recovered/Not Resolved]
  - Nausea [Unknown]

NARRATIVE: CASE EVENT DATE: 20240101
